FAERS Safety Report 7104747-8 (Version None)
Quarter: 2010Q4

REPORT INFORMATION
  Report Type: 
  Country: None (occurrence: None)
  Receive Date: 20101109
  Receipt Date: 20101028
  Transmission Date: 20110411
  Serious: Yes (Other)
  Sender: FDA-Public Use
  Company Number: CIP10002634

PATIENT
  Age: 88 Year
  Sex: Female

DRUGS (3)
  1. ACTONEL [Suspect]
     Dosage: 17.5 MG ONCE WEEKLY, ORAL
     Route: 048
  2. ALENDRONATE SODIUM [Suspect]
  3. PREDNISOLONE [Concomitant]

REACTIONS (5)
  - ABASIA [None]
  - BONE PAIN [None]
  - CONDITION AGGRAVATED [None]
  - FEMUR FRACTURE [None]
  - STRESS FRACTURE [None]
